FAERS Safety Report 11695902 (Version 1)
Quarter: 2015Q4

REPORT INFORMATION
  Report Type: Spontaneous
  Country: US (occurrence: None)
  Receive Date: 20151103
  Receipt Date: 20151103
  Transmission Date: 20160304
  Serious: Yes (Disabling, Other)
  Sender: FDA-Public Use
  Company Number: None

PATIENT
  Age: 49 Year
  Sex: Female
  Weight: 64.41 kg

DRUGS (13)
  1. LANTUS [Suspect]
     Active Substance: INSULIN GLARGINE
     Indication: TYPE 1 DIABETES MELLITUS
     Dosage: 12 UNITS-AM, 5 UNITS-PM
     Route: 058
  2. VITAMIN B12 [Concomitant]
     Active Substance: CYANOCOBALAMIN
  3. MAGNESIUM [Concomitant]
     Active Substance: MAGNESIUM
  4. ZINC [Concomitant]
     Active Substance: ZINC\ZINC CHLORIDE
  5. POWDERED HAWTHORNE BERRY [Concomitant]
  6. GARLIC. [Concomitant]
     Active Substance: GARLIC
  7. APIDRA [Suspect]
     Active Substance: INSULIN GLULISINE
     Indication: TYPE 1 DIABETES MELLITUS
     Dosage: 3 TO 10 UNITS AS NEEDED
     Route: 058
  8. LEVOTHYROXINE. [Concomitant]
     Active Substance: LEVOTHYROXINE
  9. CUR CUMIN [Concomitant]
  10. BLOOD SUGAR TEST STRIPS [Concomitant]
  11. CAYENNE PEPPER [Concomitant]
     Active Substance: CAPSICUM
  12. CALCIUM [Concomitant]
     Active Substance: CALCIUM
  13. BLOOD SUGAR TESTING DEVICE [Concomitant]

REACTIONS (2)
  - Blood glucose increased [None]
  - Product quality issue [None]

NARRATIVE: CASE EVENT DATE: 20151102
